FAERS Safety Report 7352962-0 (Version None)
Quarter: 2011Q1

REPORT INFORMATION
  Report Type: 
  Country: None (occurrence: None)
  Receive Date: 20110315
  Receipt Date: 20110307
  Transmission Date: 20110831
  Serious: Yes (Other)
  Sender: FDA-Public Use
  Company Number: US-ROCHE-763994

PATIENT

DRUGS (2)
  1. DOCETAXEL [Suspect]
     Dosage: OVER 1 HOUR ON DAYS 1, 8 AND 15 OF EACH 28 DAY CYCLE
     Route: 042
  2. BEVACIZUMAB [Suspect]
     Dosage: INFUSION OVER 30 TO 90 MINUTES
     Route: 042

REACTIONS (20)
  - FATIGUE [None]
  - HYPOALBUMINAEMIA [None]
  - CHOLANGITIS [None]
  - HYPERKALAEMIA [None]
  - LEUKOPENIA [None]
  - DIARRHOEA [None]
  - NAUSEA [None]
  - VOMITING [None]
  - DEHYDRATION [None]
  - GASTROINTESTINAL HAEMORRHAGE [None]
  - ANAEMIA [None]
  - PARAESTHESIA [None]
  - PERITONITIS [None]
  - LIVER ABSCESS [None]
  - INTESTINAL PERFORATION [None]
  - INJECTION SITE REACTION [None]
  - PROTEINURIA [None]
  - DECREASED APPETITE [None]
  - PULMONARY EMBOLISM [None]
  - NAIL DISORDER [None]
